FAERS Safety Report 6418597-9 (Version None)
Quarter: 2009Q4

REPORT INFORMATION
  Report Type: 
  Country: None (occurrence: None)
  Receive Date: 20091028
  Receipt Date: 20091015
  Transmission Date: 20100525
  Serious: Yes (Other)
  Sender: FDA-Public Use
  Company Number: PHHY2009IE42028

PATIENT
  Sex: Male

DRUGS (8)
  1. CLOZARIL [Suspect]
     Indication: SCHIZOPHRENIA
     Dosage: 100 MG MANE, 175 MG NOCTE
     Route: 048
     Dates: start: 20090914
  2. DIAZEPAM [Concomitant]
     Indication: PSYCHOTIC DISORDER
     Dosage: 20 MG, UNK
     Route: 048
  3. VALPROATE SODIUM [Concomitant]
     Indication: PSYCHOTIC DISORDER
     Dosage: 1000 MG, UNK
     Route: 048
  4. FLURAZEPAM [Concomitant]
     Indication: PSYCHOTIC DISORDER
     Dosage: 30 MG, UNK
     Route: 048
  5. VENLAFAXINE [Concomitant]
     Indication: PSYCHOTIC DISORDER
     Dosage: 75 MG, UNK
     Route: 048
  6. OLANZAPINE [Concomitant]
     Indication: PSYCHOTIC DISORDER
     Dosage: 20 MG, UNK
     Route: 048
  7. PROCYCLIDINE HYDROCHLORIDE 2MG TAB [Concomitant]
     Indication: EXTRAPYRAMIDAL DISORDER
     Dosage: 2.5 MG, UNK
     Route: 048
  8. CHLORPROMAZINE [Concomitant]
     Dosage: 100 MG, PRN
     Route: 048

REACTIONS (11)
  - ASTHENIA [None]
  - BLOOD PRESSURE INCREASED [None]
  - CARDIAC DISORDER [None]
  - DYSPNOEA [None]
  - ENDOCARDITIS [None]
  - GAMMA-GLUTAMYLTRANSFERASE INCREASED [None]
  - MALAISE [None]
  - MYOCARDITIS [None]
  - ORTHODONTIC PROCEDURE [None]
  - PALPITATIONS [None]
  - TACHYCARDIA [None]
